FAERS Safety Report 7359923-6 (Version None)
Quarter: 2011Q1

REPORT INFORMATION
  Report Type: 
  Country: None (occurrence: None)
  Receive Date: 20110317
  Receipt Date: 20110307
  Transmission Date: 20110831
  Serious: Yes (Other)
  Sender: FDA-Public Use
  Company Number: US-PFIZER INC-2011049956

PATIENT
  Sex: Female
  Weight: 126.8 kg

DRUGS (2)
  1. PRISTIQ [Suspect]
     Indication: DEPRESSION
     Dosage: 50 MG, 1X/DAY
     Route: 048
     Dates: start: 20100101
  2. METFORMIN [Concomitant]
     Indication: DIABETES MELLITUS
     Dosage: 1000 MG, 1X/DAY
     Route: 048

REACTIONS (4)
  - FLUSHING [None]
  - PARAESTHESIA [None]
  - WEIGHT DECREASED [None]
  - BLOOD GLUCOSE INCREASED [None]
